FAERS Safety Report 6122707-0 (Version None)
Quarter: 2009Q1

REPORT INFORMATION
  Report Type: 
  Country: None (occurrence: None)
  Receive Date: 20090318
  Receipt Date: 20090309
  Transmission Date: 20090719
  Serious: Yes (Hospitalization)
  Sender: FDA-Public Use
  Company Number: FR-ASTRAZENECA-2009CG00487

PATIENT
  Age: 260 Day
  Sex: Male
  Weight: 9.2 kg

DRUGS (2)
  1. XYLOCAINE [Suspect]
     Indication: ORAL HERPES
     Route: 048
     Dates: start: 20090213, end: 20090215
  2. ASPEGIC NOURRISSON [Suspect]
     Indication: ORAL HERPES
     Route: 048
     Dates: start: 20090213, end: 20090215

REACTIONS (4)
  - CONDITION AGGRAVATED [None]
  - DRUG PRESCRIBING ERROR [None]
  - FEEDING DISORDER [None]
  - MEDICATION ERROR [None]
